FAERS Safety Report 21387765 (Version 1)
Quarter: 2022Q3

REPORT INFORMATION
  Report Type: Spontaneous
  Country: US (occurrence: None)
  Receive Date: 20220926
  Receipt Date: 20220926
  Transmission Date: 20221026
  Serious: Yes (Hospitalization)
  Sender: FDA-Public Use
  Company Number: None

PATIENT
  Sex: Male

DRUGS (1)
  1. INLYTA [Suspect]
     Active Substance: AXITINIB
     Indication: Renal cancer
     Dosage: 5MG TWICE DAILY ORAL?
     Route: 048
     Dates: start: 20220422

REACTIONS (4)
  - Liver disorder [None]
  - Blood potassium increased [None]
  - Peripheral swelling [None]
  - Genital swelling [None]
